FAERS Safety Report 21919674 (Version 1)
Quarter: 2023Q1

REPORT INFORMATION
  Report Type: Spontaneous
  Country: US (occurrence: US)
  Receive Date: 20230127
  Receipt Date: 20230127
  Transmission Date: 20230418
  Serious: Yes (Death, Hospitalization, Other)
  Sender: FDA-Public Use
  Company Number: US-GLAXOSMITHKLINE-US2023009510

PATIENT

DRUGS (1)
  1. ANORO ELLIPTA [Suspect]
     Active Substance: UMECLIDINIUM BROMIDE\VILANTEROL TRIFENATATE
     Indication: Respiratory disorder
     Dosage: 1 PUFF(S), QD
     Route: 055

REACTIONS (3)
  - Death [Fatal]
  - Cerebrovascular accident [Unknown]
  - Personality change [Unknown]

NARRATIVE: CASE EVENT DATE: 20221129
